FAERS Safety Report 5397236-2 (Version None)
Quarter: 2007Q3

REPORT INFORMATION
  Report Type: 
  Country: None (occurrence: None)
  Receive Date: 20070723
  Receipt Date: 20070713
  Transmission Date: 20080115
  Serious: Yes (Other)
  Sender: FDA-Public Use
  Company Number: 015970

PATIENT
  Age: 39 Year
  Sex: Female

DRUGS (4)
  1. FLUOXETINE [Suspect]
     Indication: DEPRESSION
     Dosage: 1 CAPS., QD, ORAL
     Route: 048
     Dates: start: 20040101
  2. RELPAX (ELETRIPTAN HYDROBROMIDE) [Concomitant]
  3. TOPAMAX [Concomitant]
  4. LORAZEPAM [Concomitant]

REACTIONS (8)
  - AGITATION [None]
  - CONFUSIONAL STATE [None]
  - DRUG INTERACTION [None]
  - FEELING OF DESPAIR [None]
  - LETHARGY [None]
  - MUSCULOSKELETAL STIFFNESS [None]
  - RESTLESSNESS [None]
  - SEROTONIN SYNDROME [None]
